FAERS Safety Report 16274262 (Version 1)
Quarter: 2019Q2

REPORT INFORMATION
  Report Type: Spontaneous
  Country: ES (occurrence: ES)
  Receive Date: 20190504
  Receipt Date: 20190504
  Transmission Date: 20190711
  Serious: Yes (Other)
  Sender: FDA-Public Use
  Company Number: ES-AUROBINDO-AUR-APL-2019-024169

PATIENT

DRUGS (7)
  1. PHENYTOIN SODIUM. [Concomitant]
     Active Substance: PHENYTOIN SODIUM
     Dosage: 250 MILLIGRAM, ONCE A DAY
     Route: 048
  2. LEVETIRACETAM CONCENTRATE FOR SOLUTION FOR INFUSION [Suspect]
     Active Substance: LEVETIRACETAM
     Indication: PARTIAL SEIZURES
     Dosage: 1 GRAM, UNK
     Route: 042
  3. PHENYTOIN SODIUM. [Concomitant]
     Active Substance: PHENYTOIN SODIUM
     Indication: SEIZURE
     Dosage: LOADING DOSE OF 1 G
     Route: 042
  4. VALPROIC ACID. [Concomitant]
     Active Substance: VALPROIC ACID
     Indication: SEIZURE
     Dosage: 1500 MILLIGRAM, ONCE A DAY
     Route: 065
  5. LACOSAMIDE. [Suspect]
     Active Substance: LACOSAMIDE
     Indication: PARTIAL SEIZURES
     Dosage: 100 MILLIGRAM, ONCE A DAY (50 MG, 2X/DAY (BID))
     Route: 065
  6. CLOBAZAM. [Concomitant]
     Active Substance: CLOBAZAM
     Indication: SEIZURE
     Dosage: 20 MILLIGRAM, ONCE A DAY (10 MG, 2X/DAY (BID))
     Route: 065
  7. LACOSAMIDE. [Suspect]
     Active Substance: LACOSAMIDE
     Dosage: 200 MILLIGRAM, ONCE A DAY (100 MG, 2X/DAY (BID))
     Route: 048

REACTIONS (3)
  - Drug reaction with eosinophilia and systemic symptoms [Unknown]
  - Diplopia [Unknown]
  - Seizure [Unknown]

NARRATIVE: CASE EVENT DATE: 201801
